FAERS Safety Report 8792492 (Version 2)
Quarter: 2012Q4

REPORT INFORMATION
  Report Type: 
  Country: US (occurrence: US)
  Receive Date: 20120918
  Receipt Date: 20120924
  Transmission Date: 20130627
  Serious: Yes (Death, Hospitalization)
  Sender: FDA-Public Use
  Company Number: US-ROCHE-1128312

PATIENT
  Sex: Male

DRUGS (11)
  1. AVASTIN [Suspect]
     Indication: AMYLOIDOSIS
     Route: 042
     Dates: start: 20070119, end: 20070119
  2. AVASTIN [Suspect]
     Indication: WALDENSTROM^S MACROGLOBULINAEMIA
  3. AMIODARONE [Concomitant]
     Route: 065
  4. SINEMET [Concomitant]
     Dosage: 25/100 three
     Route: 065
  5. DOCUSATE [Concomitant]
     Route: 065
  6. LASIX [Concomitant]
     Route: 042
  7. SYNTHROID [Concomitant]
     Route: 065
  8. LORAZEPAM [Concomitant]
  9. MIDODRINE [Concomitant]
     Route: 065
  10. POTASSIUM [Concomitant]
     Route: 065
  11. REQUIP [Concomitant]
     Route: 065

REACTIONS (5)
  - Death [Fatal]
  - Fatigue [Unknown]
  - Dyspnoea [Unknown]
  - Haemoglobin decreased [Unknown]
  - Pleural effusion [Unknown]
